FAERS Safety Report 9758630 (Version 1)
Quarter: 2013Q4

REPORT INFORMATION
  Report Type: Spontaneous
  Country: US (occurrence: None)
  Receive Date: 20131216
  Receipt Date: 20131216
  Transmission Date: 20140711
  Serious: Yes (Hospitalization)
  Sender: FDA-Public Use
  Company Number: 1204USA03831

PATIENT
  Age: 72 Year
  Sex: Male

DRUGS (1)
  1. HYZAAR (LOSARTAN POTASSIUM (+) HYDROCHLOROTHIAZIDE) TABLET [Suspect]
     Indication: HYPERTENSION
     Dosage: 100MG-12.5. ORAL?50MG-12.5 ORAL

REACTIONS (2)
  - Drug ineffective [None]
  - No adverse event [None]
